FAERS Safety Report 7419730-2 (Version None)
Quarter: 2011Q2

REPORT INFORMATION
  Report Type: 
  Country: None (occurrence: None)
  Receive Date: 20110418
  Receipt Date: 20110405
  Transmission Date: 20111010
  Serious: Yes (Hospitalization)
  Sender: FDA-Public Use
  Company Number: BE-ELI_LILLY_AND_COMPANY-BE201104002165

PATIENT
  Sex: Female

DRUGS (3)
  1. FORTEO [Suspect]
     Dosage: UNK
     Dates: start: 20110124, end: 20110310
  2. CORTISONE [Concomitant]
  3. FORTEO [Suspect]
     Dosage: UNK
     Dates: start: 20100622

REACTIONS (1)
  - HERPES ZOSTER [None]
